FAERS Safety Report 6287504-4 (Version None)
Quarter: 2009Q3

REPORT INFORMATION
  Report Type: 
  Country: None (occurrence: None)
  Receive Date: 20090727
  Receipt Date: 20090714
  Transmission Date: 20100115
  Serious: Yes (Other)
  Sender: FDA-Public Use
  Company Number: 3-20090714

PATIENT

DRUGS (1)
  1. CHLORHEXIDINE GLUCONATE [Suspect]
     Indication: BACTERIAL INFECTION
     Dosage: ORAL
     Route: 048
     Dates: start: 20090501, end: 20090701

REACTIONS (2)
  - BURKHOLDERIA CEPACIA COMPLEX INFECTION [None]
  - PRODUCT QUALITY ISSUE [None]
